FAERS Safety Report 12518918 (Version 1)
Quarter: 2016Q2

REPORT INFORMATION
  Report Type: Spontaneous
  Country: SE (occurrence: SE)
  Receive Date: 20160630
  Receipt Date: 20160630
  Transmission Date: 20160815
  Serious: Yes (Hospitalization, Other)
  Sender: FDA-Public Use
  Company Number: PHHY2016SE088499

PATIENT
  Age: 13 Year
  Sex: Male

DRUGS (11)
  1. TREOSULFAN [Suspect]
     Active Substance: TREOSULFAN
     Indication: IMMUNOSUPPRESSION
     Dosage: 42 MG/M2, UNK
     Route: 065
  2. ANTITHYMOCYTE IMMUNOGLOBULIN [Suspect]
     Active Substance: THYMOCYTE IMMUNE GLOBULIN NOS
     Indication: IMMUNOSUPPRESSION
     Dosage: 8 MG/KG, UNK
     Route: 065
  3. SOFOSBUVIR [Interacting]
     Active Substance: SOFOSBUVIR
     Indication: ANTIVIRAL TREATMENT
     Dosage: 400 MG, QD
     Route: 065
  4. SIMEPREVIR [Interacting]
     Active Substance: SIMEPREVIR
     Indication: ANTIVIRAL TREATMENT
     Dosage: 150 MG, QD
     Route: 065
  5. TACROLIMUS. [Suspect]
     Active Substance: TACROLIMUS
     Indication: IMMUNOSUPPRESSION
     Route: 065
  6. FLUDARABINE [Suspect]
     Active Substance: FLUDARABINE PHOSPHATE
     Indication: IMMUNOSUPPRESSION
     Dosage: 150 MG/M2, UNK
  7. ACETYLCYSTEINE. [Suspect]
     Active Substance: ACETYLCYSTEINE
     Indication: PROPHYLAXIS
     Route: 065
  8. NIFEDIPINE. [Interacting]
     Active Substance: NIFEDIPINE
     Indication: HYPERTENSION
     Route: 065
  9. PEGYLATED INTERFERON ALFA-2A [Suspect]
     Active Substance: PEGINTERFERON ALFA-2A
     Indication: HEPATITIS C
     Route: 065
  10. RIBAVIRIN. [Concomitant]
     Active Substance: RIBAVIRIN
     Indication: HEPATITIS C
     Route: 065
  11. SIROLIMUS. [Suspect]
     Active Substance: SIROLIMUS
     Indication: IMMUNOSUPPRESSION
     Route: 065

REACTIONS (11)
  - Posterior reversible encephalopathy syndrome [Unknown]
  - Type 1 diabetes mellitus [Unknown]
  - Cytomegalovirus infection [Unknown]
  - Septic shock [Recovered/Resolved]
  - Polyuria [Unknown]
  - Chronic graft versus host disease [Unknown]
  - Transaminases increased [Recovered/Resolved]
  - Oedema peripheral [Recovering/Resolving]
  - Acute graft versus host disease [Unknown]
  - Hepatitis C RNA increased [Recovered/Resolved]
  - Drug interaction [Unknown]
